FAERS Safety Report 25114932 (Version 1)
Quarter: 2025Q1

REPORT INFORMATION
  Report Type: Spontaneous
  Country: GB (occurrence: GB)
  Receive Date: 20250324
  Receipt Date: 20250324
  Transmission Date: 20250409
  Serious: Yes (Hospitalization, Other)
  Sender: BRISTOL-MYERS SQUIBB COMPANY
  Company Number: GB-BRISTOL-MYERS SQUIBB COMPANY-2025-042726

PATIENT
  Age: 62 Year
  Sex: Male

DRUGS (5)
  1. APIXABAN [Suspect]
     Active Substance: APIXABAN
     Indication: Product used for unknown indication
  2. DOXYCYCLINE [Concomitant]
     Active Substance: DOXYCYCLINE
     Indication: Product used for unknown indication
  3. AVELUMAB [Concomitant]
     Active Substance: AVELUMAB
     Indication: Metastatic lymphoma
     Dates: start: 20240125, end: 20250220
  4. CISPLATIN [Concomitant]
     Active Substance: CISPLATIN
     Indication: Metastatic lymphoma
     Dates: start: 20230720, end: 20231130
  5. GEMCITABINE [Concomitant]
     Active Substance: GEMCITABINE
     Indication: Metastatic lymphoma
     Dates: start: 20230720, end: 20231207

REACTIONS (4)
  - Haematuria [Recovered/Resolved]
  - Anaemia [Unknown]
  - Oedema peripheral [Unknown]
  - Crepitations [Unknown]

NARRATIVE: CASE EVENT DATE: 20250211
